FAERS Safety Report 10269381 (Version 1)
Quarter: 2014Q3

REPORT INFORMATION
  Report Type: Spontaneous
  Country: FR (occurrence: FR)
  Receive Date: 20140701
  Receipt Date: 20140701
  Transmission Date: 20150326
  Serious: Yes (Hospitalization)
  Sender: FDA-Public Use
  Company Number: FR-MERCK-1406FRA013160

PATIENT
  Age: 68 Year
  Sex: Female

DRUGS (11)
  1. FLUCONAZOLE. [Concomitant]
     Active Substance: FLUCONAZOLE
  2. DIFFU-K [Concomitant]
     Active Substance: POTASSIUM CHLORIDE
  3. DAFALGAN [Concomitant]
     Active Substance: ACETAMINOPHEN
  4. IMOVANE [Concomitant]
     Active Substance: ZOPICLONE
  5. CALCIPARINE [Concomitant]
     Active Substance: HEPARIN CALCIUM
  6. ECONAZOLE [Concomitant]
     Active Substance: ECONAZOLE
  7. LOVENOX [Concomitant]
     Active Substance: ENOXAPARIN SODIUM
  8. ATARAX [Concomitant]
     Active Substance: HYDROXYZINE\HYDROXYZINE HYDROCHLORIDE
  9. INVANZ [Suspect]
     Active Substance: ERTAPENEM SODIUM
     Dosage: 1 G, QD
     Route: 042
     Dates: start: 20140531, end: 20140605
  10. LASILIX [Concomitant]
     Active Substance: FUROSEMIDE
     Dosage: UNK
     Route: 048
     Dates: start: 20140603, end: 20140605
  11. INEXIUM (ESOMEPRAZOLE MAGNESIUM) [Concomitant]

REACTIONS (4)
  - Skin exfoliation [Recovered/Resolved]
  - Erythema [Recovered/Resolved]
  - Pruritus [Recovered/Resolved]
  - Eosinophilia [Recovered/Resolved]

NARRATIVE: CASE EVENT DATE: 20140605
